FAERS Safety Report 6130220-X (Version None)
Quarter: 2009Q1

REPORT INFORMATION
  Report Type: 
  Country: None (occurrence: None)
  Receive Date: 20090324
  Receipt Date: 20090318
  Transmission Date: 20090719
  Serious: Yes (Hospitalization)
  Sender: FDA-Public Use
  Company Number: US-KINGPHARMUSA00001-K200900304

PATIENT
  Age: 79 Year
  Sex: Male

DRUGS (9)
  1. ALTACE [Suspect]
     Indication: RENAL IMPAIRMENT
     Dosage: 2.5 MG, QD
     Route: 048
  2. FUROSEMIDE [Suspect]
     Indication: RENAL IMPAIRMENT
     Dosage: 40 MG, QD
     Route: 048
  3. CAPTOPRIL [Suspect]
     Indication: HYPERTENSION
     Dosage: 25 MG, QD
     Route: 048
  4. FALICARD [Suspect]
     Indication: HYPERTENSION
     Dosage: 240 MG, QD
     Route: 048
  5. THEOPHYLLINE [Suspect]
     Indication: CHRONIC OBSTRUCTIVE PULMONARY DISEASE
     Dosage: 400 MG, BID
     Route: 048
     Dates: end: 20090119
  6. XIPAMIDE [Suspect]
     Indication: HYPERTENSION
     Dosage: 20 MG, QD
     Route: 048
     Dates: end: 20090101
  7. XIPAMIDE [Suspect]
     Dosage: 5 MG, QD
     Route: 048
     Dates: start: 20090101
  8. DOMPERIDONE [Concomitant]
     Indication: GASTRITIS
     Dosage: 10 MG, TID
     Route: 048
  9. PANTOZOL                           /01263202/ [Concomitant]
     Indication: GASTRITIS
     Dosage: 40 MG, BID
     Route: 048
     Dates: start: 20061201

REACTIONS (6)
  - ASTHENIA [None]
  - DIZZINESS [None]
  - HYPOTENSION [None]
  - NAUSEA [None]
  - OVERDOSE [None]
  - TACHYCARDIA [None]
